FAERS Safety Report 9448180 (Version 1)
Quarter: 2013Q3

REPORT INFORMATION
  Report Type: Spontaneous
  Country: GB (occurrence: None)
  Receive Date: 20130806
  Receipt Date: 20130806
  Transmission Date: 20140515
  Serious: Yes (Other)
  Sender: FDA-Public Use
  Company Number: SYM-2013-07441

PATIENT
  Age: 57 Year
  Sex: Male

DRUGS (3)
  1. METRONIDAZOLE [Suspect]
     Indication: ROSACEA
     Route: 048
     Dates: start: 20130704, end: 20130704
  2. SIMVASTATIN (SIMVASTATIN) (SIMVASTATIN) [Concomitant]
  3. LISINOPRIL (LISINOPRIL) (LISINOPRIL) [Concomitant]

REACTIONS (2)
  - Eye swelling [None]
  - Pruritus generalised [None]
